FAERS Safety Report 16016660 (Version 1)
Quarter: 2019Q1

REPORT INFORMATION
  Report Type: Spontaneous
  Country: US (occurrence: US)
  Receive Date: 20190228
  Receipt Date: 20190228
  Transmission Date: 20190418
  Serious: Yes (Life-Threatening, Other)
  Sender: FDA-Public Use
  Company Number: US-JNJFOC-20190218882

PATIENT
  Age: 55 Year
  Sex: Female
  Weight: 68 kg

DRUGS (7)
  1. DOXIL [Suspect]
     Active Substance: DOXORUBICIN HYDROCHLORIDE
     Indication: PRODUCT USED FOR UNKNOWN INDICATION
     Route: 065
     Dates: start: 200811, end: 200901
  2. DOCETAXEL. [Suspect]
     Active Substance: DOCETAXEL
     Indication: BREAST CANCER
     Route: 042
     Dates: start: 20090115
  3. TYKERB [Suspect]
     Active Substance: LAPATINIB DITOSYLATE
     Indication: BREAST CANCER
     Route: 048
     Dates: start: 20090501
  4. CYCLOPHOSPHAMIDE. [Suspect]
     Active Substance: CYCLOPHOSPHAMIDE
     Indication: PRODUCT USED FOR UNKNOWN INDICATION
     Route: 065
     Dates: start: 200811, end: 200901
  5. CARBOPLATIN. [Suspect]
     Active Substance: CARBOPLATIN
     Indication: BREAST CANCER
     Route: 042
     Dates: start: 20090115
  6. TYKERB [Suspect]
     Active Substance: LAPATINIB DITOSYLATE
     Indication: BREAST CANCER
     Route: 048
  7. IMATINIB. [Concomitant]
     Active Substance: IMATINIB MESYLATE
     Route: 065

REACTIONS (1)
  - Acute myeloid leukaemia [Recovered/Resolved]

NARRATIVE: CASE EVENT DATE: 20100826
